FAERS Safety Report 8021353-1 (Version None)
Quarter: 2011Q4

REPORT INFORMATION
  Report Type: 
  Country: None (occurrence: None)
  Receive Date: 20111230
  Receipt Date: 20111230
  Transmission Date: 20120403
  Serious: No
  Sender: FDA-Public Use
  Company Number: None

PATIENT
  Age: 66 Year
  Sex: Male
  Weight: 104.4 kg

DRUGS (1)
  1. THALIDOMIDE [Suspect]
     Indication: MULTIPLE MYELOMA
     Dosage: 100 MG EVERY DAY PO
     Route: 048
     Dates: start: 20111006, end: 20111112

REACTIONS (2)
  - NEOPLASM PROGRESSION [None]
  - EMBOLISM [None]
